FAERS Safety Report 6087147-1 (Version None)
Quarter: 2009Q1

REPORT INFORMATION
  Report Type: 
  Country: None (occurrence: None)
  Receive Date: 20090219
  Receipt Date: 20081030
  Transmission Date: 20090719
  Serious: No
  Sender: FDA-Public Use
  Company Number: WAES 0810USA05307

PATIENT
  Age: 57 Year
  Sex: Male

DRUGS (3)
  1. ISENTRESS [Suspect]
     Indication: HIV TEST POSITIVE
     Dosage: 400 MG/BID/PO
     Route: 048
     Dates: start: 20080924, end: 20081022
  2. REYATAZ [Concomitant]
  3. TRUVADA [Concomitant]

REACTIONS (1)
  - RASH [None]
